FAERS Safety Report 4775133-0 (Version None)
Quarter: 2005Q3

REPORT INFORMATION
  Report Type: 
  Country: None (occurrence: None)
  Receive Date: 20050920
  Receipt Date: 20050912
  Transmission Date: 20060218
  Serious: Yes (Other)
  Sender: FDA-Public Use
  Company Number: 2005127067

PATIENT
  Age: 77 Year
  Sex: Male
  Weight: 84.369 kg

DRUGS (2)
  1. CELEBREX [Suspect]
     Indication: OSTEOARTHRITIS
     Dosage: 200 MG (200 MG, AS NECESSARY), ORAL
     Route: 048
     Dates: start: 19990201
  2. ZESTRIL [Concomitant]

REACTIONS (4)
  - GAIT DISTURBANCE [None]
  - HYPERPHAGIA [None]
  - PAIN [None]
  - WEIGHT INCREASED [None]
